FAERS Safety Report 5378348-6 (Version None)
Quarter: 2007Q3

REPORT INFORMATION
  Report Type: 
  Country: None (occurrence: None)
  Receive Date: 20070705
  Receipt Date: 20070622
  Transmission Date: 20080115
  Serious: Yes (Hospitalization)
  Sender: FDA-Public Use
  Company Number: FR-BAYER-200710322BFR

PATIENT
  Age: 70 Year
  Sex: Male
  Weight: 60 kg

DRUGS (22)
  1. SORAFENIB OR PLACEBO [Suspect]
     Indication: NON-SMALL CELL LUNG CANCER
     Dosage: TOTAL DAILY DOSE: 800 MG  UNIT DOSE: 200 MG
     Route: 048
     Dates: start: 20070511, end: 20070515
  2. SORAFENIB OR PLACEBO [Suspect]
     Dosage: TOTAL DAILY DOSE: 800 MG  UNIT DOSE: 200 MG
     Route: 048
     Dates: start: 20070520, end: 20070615
  3. GEMCITABINE HCL [Suspect]
     Indication: NON-SMALL CELL LUNG CANCER
     Route: 042
     Dates: start: 20070511, end: 20070511
  4. GEMCITABINE HCL [Suspect]
     Route: 042
     Dates: start: 20070518, end: 20070518
  5. GEMCITABINE HCL [Suspect]
     Route: 042
     Dates: start: 20070608, end: 20070608
  6. GEMCITABINE HCL [Suspect]
     Route: 042
     Dates: start: 20070601, end: 20070601
  7. CISPLATIN [Suspect]
     Indication: NON-SMALL CELL LUNG CANCER
     Route: 042
     Dates: start: 20070511, end: 20070511
  8. CISPLATIN [Suspect]
     Route: 042
     Dates: start: 20070601, end: 20070601
  9. ASPIRIN [Concomitant]
     Indication: UNEVALUABLE EVENT
     Route: 048
     Dates: end: 20070606
  10. ISOPTIN [Concomitant]
     Indication: UNEVALUABLE EVENT
     Route: 048
  11. CRESTOR [Concomitant]
     Indication: UNEVALUABLE EVENT
     Route: 048
  12. ZOLPIDEM TARTRATE [Concomitant]
     Indication: UNEVALUABLE EVENT
     Route: 048
  13. PARIET [Concomitant]
     Indication: UNEVALUABLE EVENT
     Route: 048
  14. PRIMPERAN INJ [Concomitant]
     Indication: UNEVALUABLE EVENT
     Route: 048
     Dates: start: 20070606
  15. FORLAX [Concomitant]
     Indication: UNEVALUABLE EVENT
     Route: 048
     Dates: start: 20070606
  16. OXYNORM [Concomitant]
     Indication: UNEVALUABLE EVENT
     Dosage: TOTAL DAILY DOSE: 20 MG
     Route: 048
     Dates: start: 20070606
  17. PAROXETINE HCL [Concomitant]
     Indication: BACK PAIN
     Route: 048
     Dates: start: 20070601
  18. OXYCONTIN [Concomitant]
     Indication: UNEVALUABLE EVENT
     Route: 048
     Dates: start: 20070607
  19. LYRICA [Concomitant]
     Indication: BACK PAIN
     Route: 048
     Dates: start: 20070607
  20. ALUMINUM HYDROXIDE AND MAGNESIUM TRISILICATE [Concomitant]
     Indication: UNEVALUABLE EVENT
     Route: 048
     Dates: start: 20070524
  21. ALUMINUM HYDROXIDE AND MAGNESIUM TRISILICATE [Concomitant]
     Route: 048
     Dates: start: 20070607
  22. RIVOTRIL [Concomitant]
     Indication: BACK PAIN
     Route: 048
     Dates: start: 20070512, end: 20070601

REACTIONS (3)
  - DIARRHOEA [None]
  - GENERAL PHYSICAL HEALTH DETERIORATION [None]
  - WEIGHT DECREASED [None]
